FAERS Safety Report 25887955 (Version 1)
Quarter: 2025Q4

REPORT INFORMATION
  Report Type: Spontaneous
  Country: US (occurrence: US)
  Receive Date: 20251007
  Receipt Date: 20251007
  Transmission Date: 20260118
  Serious: Yes (Hospitalization, Other)
  Sender: PIRAMAL
  Company Number: US-PIRAMAL PHARMA LIMITED-2025-PPL-000565

PATIENT

DRUGS (2)
  1. GABLOFEN [Suspect]
     Active Substance: BACLOFEN
     Indication: Muscle spasticity
     Dosage: 118.9 MICROGRAM/ ML
     Route: 037
  2. GABLOFEN [Suspect]
     Active Substance: BACLOFEN
     Dosage: EXTRA BOLUS
     Route: 037

REACTIONS (2)
  - Fall [Recovered/Resolved]
  - Muscle spasticity [Recovered/Resolved]

NARRATIVE: CASE EVENT DATE: 20250912
